FAERS Safety Report 6578796 (Version 28)
Quarter: 2013Q4

REPORT INFORMATION
  Report Type: Spontaneous
  Country: US (occurrence: US)
  Receive Date: 20080312
  Receipt Date: 20131209
  Transmission Date: 20140711
  Serious: Yes (Hospitalization, Disabling, Other)
  Sender: FDA-Public Use
  Company Number: PHEH2008US02463

PATIENT
  Age: 69 Year
  Sex: Male
  Weight: 91.55 kg

DRUGS (51)
  1. ZOMETA [Suspect]
     Indication: METASTASES TO BONE
     Dosage: 4 MG, EVERY 28 DAYS
     Dates: start: 20041020, end: 20050701
  2. ZOMETA [Suspect]
     Indication: PLASMA CELL MYELOMA
  3. ZOMETA [Suspect]
     Indication: NON-HODGKIN^S LYMPHOMA
  4. ZOMETA [Suspect]
     Indication: BONE LESION
  5. LEVAQUIN [Concomitant]
  6. DOXYCYCLINE [Concomitant]
  7. ISOSORBIDE [Concomitant]
  8. COREG [Concomitant]
  9. FUROSEMIDE [Concomitant]
  10. CHEMOTHERAPEUTICS NOS [Concomitant]
  11. RADIATION [Concomitant]
  12. RITUXAN [Concomitant]
  13. CYCLOPHOSPHAMIDE W/VINCRISTINE/PREDNISONE [Concomitant]
  14. MITOXANTRONE [Concomitant]
  15. ZINECARD [Concomitant]
  16. NEULASTA [Concomitant]
  17. ARANESP [Concomitant]
  18. DECADRON                                /CAN/ [Concomitant]
  19. TYLENOL [Concomitant]
  20. BENADRYL ^WARNER-LAMBERT^               /USA/ [Concomitant]
  21. ATENOLOL [Concomitant]
  22. CELEBREX [Concomitant]
  23. COUMADIN ^BOOTS^ [Concomitant]
  24. NIFEDIPINE [Concomitant]
  25. ZOCOR ^MERCK^ [Concomitant]
  26. NITROGLYCERIN ^PHARMACIA + UPJOHN^ [Concomitant]
  27. WARFARIN [Concomitant]
  28. ASPIRIN ^BAYER^ [Concomitant]
  29. PREDNISONE [Concomitant]
  30. CIPROFLOXACIN [Concomitant]
  31. PROCHLORPERAZINE [Concomitant]
  32. LANSOPRAZOLE [Concomitant]
     Indication: ABDOMINAL DISCOMFORT
     Dosage: 1 DF, QD
     Route: 048
  33. NORVAS [Concomitant]
     Indication: HYPERTENSION
     Dosage: 1 DF, QD
     Route: 048
  34. COMPAZINE [Concomitant]
  35. PHENERGAN ^AVENTIS PHARMA^ [Concomitant]
  36. NEXIUM [Concomitant]
  37. PENICILLIN ^GRUNENTHAL^ [Concomitant]
  38. BIOTENE [Concomitant]
  39. MAGIC MOUTHWASH [Concomitant]
  40. ACTONEL [Concomitant]
  41. LORTAB [Concomitant]
  42. ALLOPURINOL [Concomitant]
  43. SIMVASTATIN [Concomitant]
  44. OXYCODONE [Concomitant]
  45. PETROLATUM [Concomitant]
  46. AMBIEN [Concomitant]
  47. PERCOCET [Concomitant]
  48. LASIX [Concomitant]
  49. PROBENECID W/COLCHICINE [Concomitant]
  50. ALTACE [Concomitant]
     Dosage: 2.5 MG, QD
  51. LEXAPRO [Concomitant]
     Dosage: 10 MG, QD

REACTIONS (162)
  - Cardiac failure congestive [Unknown]
  - Left ventricular dysfunction [Unknown]
  - Cardiomyopathy [Unknown]
  - Neuralgia [Recovering/Resolving]
  - Ventricular tachycardia [Unknown]
  - Bundle branch block [Unknown]
  - Pericardial effusion [Unknown]
  - Herpes zoster [Unknown]
  - Pleural effusion [Unknown]
  - Neuropathy peripheral [Unknown]
  - Osteonecrosis of jaw [Not Recovered/Not Resolved]
  - Pain [Unknown]
  - Infection [Unknown]
  - Deformity [Unknown]
  - Emotional distress [Unknown]
  - Anxiety [Unknown]
  - Sinusitis [Unknown]
  - Hepatic cyst [Unknown]
  - Granuloma [Unknown]
  - Spinal osteoarthritis [Unknown]
  - Cerebral ischaemia [Unknown]
  - Prostatomegaly [Unknown]
  - Gastrooesophageal reflux disease [Unknown]
  - Tooth abscess [Unknown]
  - Non-Hodgkin^s lymphoma recurrent [Unknown]
  - Concomitant disease aggravated [Unknown]
  - Metastases to liver [Unknown]
  - Lymphadenopathy [Unknown]
  - Ascites [Unknown]
  - Abdominal pain [Unknown]
  - Neutropenia [Unknown]
  - White blood cell count decreased [Unknown]
  - Anaemia of chronic disease [Unknown]
  - Renal cyst [Unknown]
  - Amnesia [Unknown]
  - Soft tissue inflammation [Unknown]
  - Intervertebral disc protrusion [Unknown]
  - Spinal column stenosis [Unknown]
  - Hypotension [Unknown]
  - Confusional state [Unknown]
  - Dysarthria [Unknown]
  - Thrombocytopenia [Unknown]
  - Renal failure [Recovering/Resolving]
  - Pneumonia [Unknown]
  - Nephrolithiasis [Unknown]
  - Bronchitis [Unknown]
  - Hypogammaglobulinaemia [Unknown]
  - Arteriosclerosis coronary artery [Unknown]
  - Urinary tract infection [Unknown]
  - Mucosal inflammation [Unknown]
  - Pleuritic pain [Unknown]
  - Candida infection [Unknown]
  - Dehydration [Unknown]
  - Weight decreased [Unknown]
  - Dysgeusia [Unknown]
  - Oropharyngeal pain [Unknown]
  - Back pain [Unknown]
  - Cough [Unknown]
  - Upper respiratory tract infection [Unknown]
  - Asthenia [Unknown]
  - Decreased appetite [Unknown]
  - Rhinorrhoea [Unknown]
  - Nasal disorder [Unknown]
  - Fall [Unknown]
  - Contusion [Unknown]
  - Dyspnoea [Unknown]
  - Musculoskeletal stiffness [Unknown]
  - Vertebral osteophyte [Unknown]
  - Alpha haemolytic streptococcal infection [Unknown]
  - Purulent discharge [Unknown]
  - Dizziness [Unknown]
  - Presyncope [Unknown]
  - Disability [Unknown]
  - Hypoaesthesia [Unknown]
  - Inflammation [Unknown]
  - Osteomyelitis [Unknown]
  - Deafness neurosensory [Unknown]
  - Pulmonary fibrosis [Unknown]
  - Eustachian tube dysfunction [Unknown]
  - Bone marrow oedema [Unknown]
  - Chronic obstructive pulmonary disease [Unknown]
  - Cerebral atrophy [Unknown]
  - Headache [Unknown]
  - Vitreous floaters [Unknown]
  - Visual acuity reduced [Unknown]
  - Gout [Unknown]
  - Arthralgia [Unknown]
  - Erythema [Unknown]
  - Squamous cell carcinoma [Unknown]
  - Scar [Unknown]
  - Cataract [Unknown]
  - Skin cancer [Unknown]
  - Hypoacusis [Unknown]
  - Deep vein thrombosis [Unknown]
  - Joint effusion [Unknown]
  - Post procedural haematoma [Unknown]
  - Bronchial hyperreactivity [Unknown]
  - Large intestine polyp [Unknown]
  - Haemorrhoids [Unknown]
  - Lung infiltration [Unknown]
  - Rectal haemorrhage [Unknown]
  - Hypoprothrombinaemia [Unknown]
  - Occult blood [Unknown]
  - Clostridium difficile infection [Unknown]
  - Oesophageal candidiasis [Recovered/Resolved]
  - Lymphoma [Unknown]
  - Hepatic lesion [Unknown]
  - Lip blister [Unknown]
  - Lymph node calcification [Unknown]
  - Odynophagia [Unknown]
  - Pancytopenia [Unknown]
  - Arteriosclerosis [Unknown]
  - Gastroenteritis [Unknown]
  - Dysphagia [Unknown]
  - Clostridium difficile colitis [Recovered/Resolved]
  - Hydronephrosis [Unknown]
  - Decubitus ulcer [Unknown]
  - Diarrhoea [Unknown]
  - Renal failure acute [Unknown]
  - Urinary incontinence [Unknown]
  - Hypokalaemia [Unknown]
  - Rhinitis allergic [Unknown]
  - Hypovitaminosis [Unknown]
  - Malaise [Unknown]
  - Fatigue [Unknown]
  - Gait disturbance [Unknown]
  - Hypomagnesaemia [Unknown]
  - Gastritis [Recovering/Resolving]
  - Hypophagia [Unknown]
  - Productive cough [Unknown]
  - Increased upper airway secretion [Unknown]
  - Sinus disorder [Unknown]
  - Cardiomegaly [Unknown]
  - Cyst [Unknown]
  - Depression [Unknown]
  - Blood erythropoietin decreased [Unknown]
  - Breath sounds abnormal [Unknown]
  - Sciatica [Unknown]
  - Tenderness [Unknown]
  - Tendon injury [Unknown]
  - Dyslipidaemia [Unknown]
  - Pulmonary oedema [Unknown]
  - Demyelination [Unknown]
  - Cerebellar infarction [Unknown]
  - Nausea [Unknown]
  - Vomiting [Unknown]
  - Sinus congestion [Unknown]
  - Epistaxis [Unknown]
  - Mental status changes [Unknown]
  - Oedema peripheral [Unknown]
  - Febrile neutropenia [Unknown]
  - Hypophosphataemia [Unknown]
  - Prostate cancer [Unknown]
  - Second primary malignancy [Unknown]
  - Hallucination [Unknown]
  - Symbolic dysfunction [Unknown]
  - Chondrocalcinosis [Unknown]
  - Gastrointestinal haemorrhage [Unknown]
  - Haematochezia [Unknown]
  - Arthropathy [Unknown]
  - Osteoarthritis [Unknown]
  - Osteopenia [Unknown]
